FAERS Safety Report 13566250 (Version 1)
Quarter: 2017Q2

REPORT INFORMATION
  Report Type: Spontaneous
  Country: US (occurrence: US)
  Receive Date: 20170519
  Receipt Date: 20170519
  Transmission Date: 20170830
  Serious: Yes (Death)
  Sender: FDA-Public Use
  Company Number: None

PATIENT
  Age: 1 Day
  Sex: Male
  Weight: .69 kg

DRUGS (1)
  1. INFASURF [Suspect]
     Active Substance: CALFACTANT
     Indication: RESPIRATORY DISTRESS
     Dosage: OTHER FREQUENCY:3 ONE TIME DOSES;?
     Route: 007
     Dates: start: 20170426, end: 20170427

REACTIONS (5)
  - Bradycardia neonatal [None]
  - Hypercapnia [None]
  - Pulmonary haemorrhage [None]
  - Oxygen saturation decreased [None]
  - Skin discolouration [None]

NARRATIVE: CASE EVENT DATE: 20170427
